FAERS Safety Report 8999917 (Version 1)
Quarter: 2013Q1

REPORT INFORMATION
  Report Type: Report from Study
  Country: US (occurrence: US)
  Receive Date: 20130102
  Receipt Date: 20130102
  Transmission Date: 20140127
  Serious: No
  Sender: FDA-Public Use
  Company Number: US-VERTEX PHARMACEUTICALS INC.-2012-026743

PATIENT
  Sex: Male
  Weight: 63 kg

DRUGS (8)
  1. VX-950 (TELAPREVIR) [Suspect]
     Indication: HEPATITIS C
     Dosage: 750 MG, TID
     Route: 048
  2. WELLBUTRIN [Concomitant]
     Dosage: 150 MG, UNK
  3. XANAX [Concomitant]
     Dosage: 0.5 MG, UNK
  4. SONATA                             /00061001/ [Concomitant]
     Dosage: 10 MG, UNK
  5. LAMICTAL CHW [Concomitant]
     Dosage: 25 MG, UNK
  6. NEURONTIN [Concomitant]
     Dosage: 300 MG, UNK
  7. OMEPRAZOLE [Concomitant]
     Dosage: 40 MG, UNK
  8. VITAMIN D3 [Concomitant]
     Dosage: 50000 UT, UNK

REACTIONS (4)
  - Chest pain [Unknown]
  - Influenza like illness [Unknown]
  - Anal pruritus [Unknown]
  - Diarrhoea [Unknown]
